FAERS Safety Report 4353878-4 (Version None)
Quarter: 2004Q2

REPORT INFORMATION
  Report Type: 
  Country: None (occurrence: None)
  Receive Date: 20040430
  Receipt Date: 20040419
  Transmission Date: 20050107
  Serious: Yes (Hospitalization)
  Sender: FDA-Public Use
  Company Number: 2004013205

PATIENT
  Age: 37 Year
  Sex: Male
  Weight: 78.0187 kg

DRUGS (5)
  1. VIRACEPT [Suspect]
     Indication: HIV INFECTION
     Dosage: 2500 MG (BID), ORAL
     Route: 048
     Dates: start: 20031127
  2. ZIDOVUDINE [Concomitant]
  3. ENSURE PLUS (VITAMINS NOS, MINERALS NOS, ELECTROLYTES NOS, CARBOHYDRAT [Concomitant]
  4. LOPERAMIDE HCL [Concomitant]
  5. DOMPERIDONE (DOMPERIDONE) [Concomitant]

REACTIONS (4)
  - CHEST DISCOMFORT [None]
  - CHEST PAIN [None]
  - FEELING DRUNK [None]
  - SLEEP DISORDER [None]
